FAERS Safety Report 5125916-2 (Version None)
Quarter: 2006Q4

REPORT INFORMATION
  Report Type: 
  Country: None (occurrence: None)
  Receive Date: 20061012
  Receipt Date: 20061003
  Transmission Date: 20070319
  Serious: Yes (Life-Threatening)
  Sender: FDA-Public Use
  Company Number: GB-AVENTIS-200620389GDDC

PATIENT
  Age: 32 Year
  Sex: Male
  Weight: 78 kg

DRUGS (1)
  1. RIFINAH [Suspect]
     Indication: ANTIBIOTIC PROPHYLAXIS
     Dosage: DOSE: 2DF
     Route: 048
     Dates: start: 20060401, end: 20060801

REACTIONS (4)
  - ALANINE AMINOTRANSFERASE INCREASED [None]
  - ANGIONEUROTIC OEDEMA [None]
  - SWELLING FACE [None]
  - URTICARIA [None]
